FAERS Safety Report 14006123 (Version 1)
Quarter: 2017Q3

REPORT INFORMATION
  Report Type: Spontaneous
  Country: US (occurrence: US)
  Receive Date: 20170924
  Receipt Date: 20170924
  Transmission Date: 20171128
  Serious: Yes (Hospitalization, Other)
  Sender: FDA-Public Use
  Company Number: US-MYLANLABS-2017M1059114

PATIENT
  Age: 77 Year
  Sex: Male

DRUGS (5)
  1. AMPHOTERICIN B. [Concomitant]
     Active Substance: AMPHOTERICIN B
     Indication: FUSARIUM INFECTION
     Route: 042
  2. VORICONAZOLE. [Concomitant]
     Active Substance: VORICONAZOLE
     Indication: CHROMOBLASTOMYCOSIS
     Route: 065
  3. MYCOPHENOLATE MOFETIL. [Concomitant]
     Active Substance: MYCOPHENOLATE MOFETIL
     Indication: IMMUNOSUPPRESSANT DRUG THERAPY
     Route: 065
  4. ITRACONAZOLE. [Suspect]
     Active Substance: ITRACONAZOLE
     Indication: CHROMOBLASTOMYCOSIS
     Route: 065
  5. TACROLIMUS. [Interacting]
     Active Substance: TACROLIMUS
     Indication: IMMUNOSUPPRESSANT DRUG THERAPY
     Route: 065

REACTIONS (6)
  - Acute kidney injury [Unknown]
  - Hallucination, visual [Unknown]
  - Drug level increased [Recovering/Resolving]
  - Aggression [Unknown]
  - Drug interaction [Recovering/Resolving]
  - Confusional state [Unknown]
